FAERS Safety Report 26076874 (Version 2)
Quarter: 2025Q4

REPORT INFORMATION
  Report Type: Spontaneous
  Country: US (occurrence: US)
  Receive Date: 20251121
  Receipt Date: 20251121
  Transmission Date: 20260118
  Serious: Yes (Hospitalization, Other)
  Sender: GILEAD
  Company Number: US-GILEAD-2025-0736420

PATIENT
  Sex: Female

DRUGS (9)
  1. VOSEVI [Suspect]
     Active Substance: SOFOSBUVIR\VELPATASVIR\VOXILAPREVIR
     Indication: Chronic hepatitis C
     Dosage: TAKE 1 TABLET BY MOUTH DAILY WITH MEAL
     Route: 048
  2. AMLODIPINE BESYLATE [Concomitant]
     Active Substance: AMLODIPINE BESYLATE
  3. FAMOTIDINE [Concomitant]
     Active Substance: FAMOTIDINE
  4. POTASSIUM [Concomitant]
     Active Substance: POTASSIUM
  5. VITAMINS [Concomitant]
     Active Substance: VITAMINS
  6. LORAZEPAM [Concomitant]
     Active Substance: LORAZEPAM
  7. DILTIAZEM HYDROCHLORIDE [Concomitant]
     Active Substance: DILTIAZEM HYDROCHLORIDE
  8. ELIQUIS [Concomitant]
     Active Substance: APIXABAN
  9. CEFTRIAXONE [Concomitant]
     Active Substance: CEFTRIAXONE

REACTIONS (3)
  - Atrial fibrillation [Unknown]
  - Urinary tract infection [Unknown]
  - Asthenia [Unknown]
